FAERS Safety Report 18072001 (Version 1)
Quarter: 2020Q3

REPORT INFORMATION
  Report Type: Spontaneous
  Country: US (occurrence: US)
  Receive Date: 20200727
  Receipt Date: 20200727
  Transmission Date: 20201103
  Serious: No
  Sender: FDA-Public Use
  Company Number: US-PFIZER INC-2020282594

PATIENT
  Age: 65 Year
  Sex: Female

DRUGS (1)
  1. IBRANCE [Suspect]
     Active Substance: PALBOCICLIB
     Indication: BREAST CANCER METASTATIC
     Dosage: UNK (IT WAS 125 MG OF IBRANCE)

REACTIONS (4)
  - Paraesthesia [Unknown]
  - Flushing [Unknown]
  - Drug hypersensitivity [Unknown]
  - Anxiety [Unknown]
